FAERS Safety Report 19940607 (Version 1)
Quarter: 2021Q4

REPORT INFORMATION
  Report Type: Spontaneous
  Country: US (occurrence: US)
  Receive Date: 20211011
  Receipt Date: 20211011
  Transmission Date: 20220303
  Serious: Yes (Other)
  Sender: FDA-Public Use
  Company Number: US-AMERICAN REGENT INC-2021002626

PATIENT
  Age: 33 Year
  Sex: Male
  Weight: 89 kg

DRUGS (11)
  1. VASOPRESSIN [Suspect]
     Active Substance: VASOPRESSIN
     Indication: Hypotension
     Dosage: 0.04 UNITS PER MINUTE
     Route: 042
  2. EPINEPHRINE [Suspect]
     Active Substance: EPINEPHRINE
     Indication: Hypotension
     Dosage: 40 MICROGRAM PER MINUTE
     Route: 042
  3. NOREPINEPHRINE [Suspect]
     Active Substance: NOREPINEPHRINE
     Indication: Hypotension
     Dosage: 40 MICROGRAM PER MINUTE
     Route: 042
  4. MILRINONE [Suspect]
     Active Substance: MILRINONE
     Indication: Hypotension
     Dosage: 0.25 MICROGRAM/KILOGRAM/MINUTE
     Route: 042
  5. CEFTRIAXONE [Concomitant]
     Active Substance: CEFTRIAXONE
     Indication: Pneumonia streptococcal
     Dosage: UNK
     Route: 042
  6. CEFTRIAXONE [Concomitant]
     Active Substance: CEFTRIAXONE
     Indication: Enterococcal infection
     Dosage: 2 GRAM, EVERY 12 HOURS
     Route: 042
  7. CEFTRIAXONE [Concomitant]
     Active Substance: CEFTRIAXONE
     Indication: Endocarditis enterococcal
  8. VANCOMYCIN [Concomitant]
     Active Substance: VANCOMYCIN
     Indication: Pneumonia streptococcal
     Dosage: UNK
     Route: 042
  9. AZITHROMYCIN ANHYDROUS [Concomitant]
     Active Substance: AZITHROMYCIN ANHYDROUS
     Indication: Pneumonia streptococcal
     Dosage: UNK
     Route: 042
  10. AMPICILLIN [Concomitant]
     Active Substance: AMPICILLIN
     Indication: Enterococcal infection
     Dosage: 2 GRAM EVERY 4 HOURS
     Route: 042
  11. AMPICILLIN [Concomitant]
     Active Substance: AMPICILLIN
     Indication: Endocarditis enterococcal

REACTIONS (4)
  - Hypotension [Unknown]
  - Drug ineffective [Unknown]
  - Drug ineffective for unapproved indication [Unknown]
  - Product use in unapproved indication [Unknown]
